FAERS Safety Report 23588880 (Version 1)
Quarter: 2024Q1

REPORT INFORMATION
  Report Type: Spontaneous
  Country: CN (occurrence: CN)
  Receive Date: 20240304
  Receipt Date: 20240304
  Transmission Date: 20240410
  Serious: Yes (Hospitalization, Other)
  Sender: FDA-Public Use
  Company Number: CN-SA-SAC20240301001061

PATIENT
  Age: 58 Year
  Sex: Male
  Weight: 82.5 kg

DRUGS (4)
  1. ENOXAPARIN SODIUM [Suspect]
     Active Substance: ENOXAPARIN SODIUM
     Indication: Pulmonary embolism
     Dosage: 6000 U, BID
     Route: 065
     Dates: start: 20240220, end: 20240221
  2. CLOPIDOGREL BISULFATE [Suspect]
     Active Substance: CLOPIDOGREL BISULFATE
     Indication: Arteriosclerosis coronary artery
     Dosage: 75 MG, QD
     Route: 048
     Dates: start: 20240208, end: 20240219
  3. ASPIRIN [Suspect]
     Active Substance: ASPIRIN
     Indication: Arteriosclerosis coronary artery
     Dosage: 100 MG, QD
     Route: 048
     Dates: start: 20240213, end: 20240219
  4. KALLIDINOGENASE [Suspect]
     Active Substance: KALLIDINOGENASE
     Indication: Cerebral infarction
     Dosage: 0.15 U, QD
     Route: 041
     Dates: start: 20240220, end: 20240221

REACTIONS (5)
  - Pulmonary embolism [Recovering/Resolving]
  - Oropharyngeal pain [Recovering/Resolving]
  - Upper gastrointestinal haemorrhage [Recovering/Resolving]
  - Decreased appetite [Recovering/Resolving]
  - Haematocoele [Recovering/Resolving]

NARRATIVE: CASE EVENT DATE: 20240221
